FAERS Safety Report 7558386-5 (Version None)
Quarter: 2011Q2

REPORT INFORMATION
  Report Type: 
  Country: None (occurrence: None)
  Receive Date: 20110620
  Receipt Date: 20110607
  Transmission Date: 20111010
  Serious: Yes (Hospitalization)
  Sender: FDA-Public Use
  Company Number: PHHY2011US51323

PATIENT
  Sex: Male
  Weight: 52.154 kg

DRUGS (1)
  1. GLEEVEC [Suspect]
     Indication: GASTRIC CANCER
     Dosage: 400 MG DAILY
     Route: 048
     Dates: start: 20101229

REACTIONS (3)
  - FAECAL INCONTINENCE [None]
  - WEIGHT DECREASED [None]
  - STAPHYLOCOCCAL INFECTION [None]
